FAERS Safety Report 20745095 (Version 1)
Quarter: 2022Q2

REPORT INFORMATION
  Report Type: Spontaneous
  Country: US (occurrence: None)
  Receive Date: 20220422
  Receipt Date: 20220422
  Transmission Date: 20220721
  Serious: Yes (Other)
  Sender: FDA-Public Use
  Company Number: None

PATIENT
  Age: 66 Year
  Sex: Male
  Weight: 119.25 kg

DRUGS (13)
  1. NITRO-BID [Suspect]
     Active Substance: NITROGLYCERIN
     Indication: Anal fissure
     Dosage: OTHER QUANTITY : 1 INCH;?FREQUENCY : EVERY 6 HOURS;?
     Route: 054
     Dates: start: 20220305, end: 20220305
  2. LOSARTAN AND HYDROCHLOROTHIAZIDE [Concomitant]
     Active Substance: HYDROCHLOROTHIAZIDE\LOSARTAN POTASSIUM
  3. TERAZOSIN [Concomitant]
     Active Substance: TERAZOSIN HYDROCHLORIDE
  4. VITAMINS [Concomitant]
     Active Substance: VITAMINS
  5. VITAMIN D3 [Concomitant]
     Active Substance: CHOLECALCIFEROL
  6. c [Concomitant]
  7. a [Concomitant]
  8. ASPIRIN [Concomitant]
     Active Substance: ASPIRIN
  9. TYLENOL [Concomitant]
     Active Substance: ACETAMINOPHEN
  10. IBUPROFEN [Concomitant]
     Active Substance: IBUPROFEN
  11. IVERMECTIN [Concomitant]
     Active Substance: IVERMECTIN
  12. FISH OIL [Concomitant]
     Active Substance: FISH OIL
  13. QUERCETIN DIHYDRATE [Concomitant]
     Active Substance: QUERCETIN DIHYDRATE

REACTIONS (3)
  - Hallucination [None]
  - Hallucination, visual [None]
  - Malaise [None]

NARRATIVE: CASE EVENT DATE: 20220305
